FAERS Safety Report 15757793 (Version 3)
Quarter: 2019Q4

REPORT INFORMATION
  Report Type: Spontaneous
  Country: US (occurrence: US)
  Receive Date: 20181225
  Receipt Date: 20191003
  Transmission Date: 20200122
  Serious: Yes (Hospitalization, Other)
  Sender: FDA-Public Use
  Company Number: US-ABBVIE-18K-163-2600404-00

PATIENT
  Age: 59 Year
  Sex: Female
  Weight: 96.25 kg

DRUGS (1)
  1. HUMIRA [Suspect]
     Active Substance: ADALIMUMAB
     Indication: RHEUMATOID ARTHRITIS
     Route: 058
     Dates: start: 201801, end: 20180410

REACTIONS (21)
  - Sepsis [Recovered/Resolved]
  - Blood pressure increased [Recovered/Resolved]
  - Tachycardia [Recovered/Resolved]
  - Near death experience [Unknown]
  - Mouth haemorrhage [Not Recovered/Not Resolved]
  - Incoherent [Recovered/Resolved]
  - Gastrointestinal haemorrhage [Not Recovered/Not Resolved]
  - Epistaxis [Not Recovered/Not Resolved]
  - Coma [Recovered/Resolved]
  - Dehydration [Recovered/Resolved]
  - Renal failure [Recovering/Resolving]
  - Pneumonia [Recovered/Resolved]
  - Anaphylactic shock [Recovering/Resolving]
  - Malaise [Unknown]
  - Respiratory rate decreased [Unknown]
  - Mobility decreased [Unknown]
  - Atrial fibrillation [Recovered/Resolved]
  - Fatigue [Unknown]
  - Respiratory tract infection bacterial [Unknown]
  - Pulse abnormal [Recovered/Resolved]
  - Oxygen saturation decreased [Recovered/Resolved]

NARRATIVE: CASE EVENT DATE: 20180410
